FAERS Safety Report 4548249-1 (Version None)
Quarter: 2004Q4

REPORT INFORMATION
  Report Type: 
  Country: None (occurrence: None)
  Receive Date: 20041227
  Receipt Date: 20041011
  Transmission Date: 20050328
  Serious: No
  Sender: FDA-Public Use
  Company Number: 04P-163-0276905-00

PATIENT
  Age: 45 Year
  Sex: Male
  Weight: 138 kg

DRUGS (9)
  1. HUMIRA [Suspect]
     Indication: RHEUMATOID ARTHRITIS
     Dosage: 40 MG, 1 IN 2 WK, SUBCUTANEOUS
     Route: 058
     Dates: start: 20040101, end: 20040610
  2. ROFECOXIB [Concomitant]
  3. ESOMEPRAZOLE [Concomitant]
  4. ALBUTEROL [Concomitant]
  5. IPATROPIUM BROMIDE [Concomitant]
  6. FUROSEMIDE [Concomitant]
  7. KCL (POTASSIUM CHLORIDE) [Concomitant]
  8. DIAZEPAM [Concomitant]
  9. QUINAPRIL HYDROCHLORIDE [Concomitant]

REACTIONS (1)
  - CHEST PAIN [None]
